FAERS Safety Report 16581383 (Version 3)
Quarter: 2021Q1

REPORT INFORMATION
  Report Type: Report from Study
  Country: IE (occurrence: IE)
  Receive Date: 20190716
  Receipt Date: 20210216
  Transmission Date: 20210419
  Serious: Yes (Other)
  Sender: FDA-Public Use
  Company Number: IE-JNJFOC-20190708625

PATIENT
  Age: 52 Year
  Sex: Female

DRUGS (6)
  1. TREMFYA [Suspect]
     Active Substance: GUSELKUMAB
     Indication: PSORIASIS
     Route: 058
     Dates: start: 20180829
  2. ATORVASTATIN [Concomitant]
     Active Substance: ATORVASTATIN
  3. TREMFYA [Suspect]
     Active Substance: GUSELKUMAB
  4. ASPIRIN. [Concomitant]
     Active Substance: ASPIRIN
  5. TREMFYA [Suspect]
     Active Substance: GUSELKUMAB
  6. RAMIPRIL. [Concomitant]
     Active Substance: RAMIPRIL

REACTIONS (3)
  - Malaise [Unknown]
  - Psoriasis [Recovered/Resolved]
  - Bronchitis [Not Recovered/Not Resolved]

NARRATIVE: CASE EVENT DATE: 2019
